FAERS Safety Report 8623432 (Version 2)
Quarter: 2014Q1

REPORT INFORMATION
  Report Type: Spontaneous
  Country: US (occurrence: None)
  Receive Date: 20120607
  Receipt Date: 20140318
  Transmission Date: 20141002
  Serious: Yes (Other)
  Sender: FDA-Public Use
  Company Number: AUR-APL-2012-02493

PATIENT
  Age: 73 Year
  Sex: Female

DRUGS (10)
  1. ATENOLOL (ATENOLOL) [Suspect]
     Indication: PRODUCT USED FOR UNKNOWN INDICATION
     Dosage: (25 MG) ,ORAL
     Route: 048
     Dates: start: 200805, end: 200805
  2. METOPROLOL TARTRATE [Suspect]
     Indication: PRODUCT USED FOR UNKNOWN INDICATION
     Route: 048
     Dates: start: 200708, end: 200708
  3. LISINOPRIL AND HYDROCHLOROTHIAZIDE [Suspect]
     Indication: PRODUCT USED FOR UNKNOWN INDICATION
     Route: 048
     Dates: start: 20070824, end: 200805
  4. NIFEDIPINE [Suspect]
     Indication: PRODUCT USED FOR UNKNOWN INDICATION
     Dosage: (30 MG)
     Dates: start: 20080530
  5. TOPROL XL [Suspect]
     Indication: HYPERTENSION
     Dosage: 100 MG (50 MG, 2 IN 1 D)
     Route: 048
  6. COREG [Suspect]
     Indication: PRODUCT USED FOR UNKNOWN INDICATION
     Dosage: (20 MG), ORAL
     Route: 048
     Dates: start: 200801
  7. SYNTHROID (LEVOTHYROXINE SODIUM) [Concomitant]
  8. HYOPHEN (HYOPHEN /00586701/) [Concomitant]
  9. OMEPRAZOLE (OMEPRAZOLE) [Concomitant]
  10. CELEBREX (CELECOXIB) [Concomitant]

REACTIONS (15)
  - Vascular rupture [None]
  - Malaise [None]
  - Muscular weakness [None]
  - Asthenia [None]
  - Dizziness [None]
  - Constipation [None]
  - Fatigue [None]
  - Drug ineffective [None]
  - Hypertension [None]
  - Eye haemorrhage [None]
  - Muscle spasms [None]
  - Paraesthesia [None]
  - Confusional state [None]
  - Hypoaesthesia [None]
  - Abdominal discomfort [None]
